FAERS Safety Report 19912816 (Version 2)
Quarter: 2024Q3

REPORT INFORMATION
  Report Type: Spontaneous
  Country: US (occurrence: US)
  Receive Date: 20211004
  Receipt Date: 20240709
  Transmission Date: 20241017
  Serious: No
  Sender: PFIZER
  Company Number: US-PFIZER INC-2019340544

PATIENT
  Age: 65 Year
  Sex: Female

DRUGS (1)
  1. XELJANZ [Suspect]
     Active Substance: TOFACITINIB CITRATE
     Dosage: 5 MG, 2X/DAY (TO HALVE THE 10 MG AND TAKE EACH HALF SEPARATELY)

REACTIONS (5)
  - Viral infection [Unknown]
  - Illness [Unknown]
  - Wrong technique in product usage process [Unknown]
  - Off label use [Unknown]
  - Product dispensing error [Unknown]
